FAERS Safety Report 9490383 (Version 4)
Quarter: 2014Q1

REPORT INFORMATION
  Report Type: Spontaneous
  Country: JP (occurrence: JP)
  Receive Date: 20130830
  Receipt Date: 20140327
  Transmission Date: 20141002
  Serious: Yes (Other)
  Sender: FDA-Public Use
  Company Number: JP-AMGEN-JPNSP2013060919

PATIENT
  Age: 73 Year
  Sex: Male
  Weight: 59.2 kg

DRUGS (11)
  1. RANMARK [Suspect]
     Indication: PROSTATE CANCER
     Dosage: 120 MG, Q4WK
     Route: 058
     Dates: start: 20121206, end: 20130929
  2. RANMARK [Suspect]
     Indication: METASTASES TO BONE
  3. CASODEX [Concomitant]
     Indication: PROSTATE CANCER
     Dosage: 80 MG, QD
     Route: 048
     Dates: start: 20120127
  4. ONEALFA [Concomitant]
     Indication: HYPOCALCAEMIA
     Dosage: 1 MUG, QD
     Route: 048
     Dates: start: 20121206, end: 20130926
  5. CALCIUM LACTATE [Concomitant]
     Indication: HYPOCALCAEMIA
     Dosage: 0.5-1 G, TID
     Route: 048
     Dates: start: 20121206, end: 20130926
  6. ZOLADEX LA [Concomitant]
     Indication: PROSTATE CANCER
     Dosage: 10.8 MG, Q3WK
     Route: 058
     Dates: start: 20120213
  7. FLIVAS [Concomitant]
     Indication: BENIGN PROSTATIC HYPERPLASIA
     Dosage: 75 MG, QD
     Route: 048
     Dates: start: 20130107, end: 20130401
  8. ZANTAC [Concomitant]
     Indication: GASTRITIS
     Dosage: 150 MG, QD
     Route: 048
  9. URSO                               /00465701/ [Concomitant]
     Indication: LIVER DISORDER
     Dosage: 100 MG, TID
     Route: 048
  10. SELBEX [Concomitant]
     Indication: GASTRITIS
     Dosage: 50 MG, TID
     Route: 048
  11. MEILAX [Concomitant]
     Indication: NEUROSIS
     Dosage: 1 MG, TID
     Route: 048

REACTIONS (1)
  - Osteonecrosis of jaw [Not Recovered/Not Resolved]
